FAERS Safety Report 6612092-X (Version None)
Quarter: 2010Q1

REPORT INFORMATION
  Report Type: 
  Country: None (occurrence: None)
  Receive Date: 20100303
  Receipt Date: 20100301
  Transmission Date: 20100710
  Serious: Yes (Death)
  Sender: FDA-Public Use
  Company Number: US-CEPHALON-2010001153

PATIENT
  Age: 57 Year
  Sex: Female

DRUGS (3)
  1. ACTIQ [Suspect]
  2. AMRIX [Suspect]
  3. HYDROCODONE [Suspect]

REACTIONS (1)
  - DRUG ABUSE [None]
